FAERS Safety Report 10835866 (Version 1)
Quarter: 2015Q1

REPORT INFORMATION
  Report Type: Report from Study
  Country: US (occurrence: US)
  Receive Date: 20150219
  Receipt Date: 20150219
  Transmission Date: 20150721
  Serious: No
  Sender: FDA-Public Use
  Company Number: US-ABBVIE-14P-163-1201914-00

PATIENT
  Sex: Male

DRUGS (3)
  1. HUMIRA [Suspect]
     Active Substance: ADALIMUMAB
     Dates: start: 20140207
  2. HUMIRA [Suspect]
     Active Substance: ADALIMUMAB
     Indication: CROHN^S DISEASE
     Dates: start: 20140110, end: 20140110
  3. HUMIRA [Suspect]
     Active Substance: ADALIMUMAB
     Dates: start: 20140124, end: 20140124

REACTIONS (2)
  - Injection site bruising [Not Recovered/Not Resolved]
  - Diarrhoea [Unknown]
